FAERS Safety Report 6574599-3 (Version None)
Quarter: 2010Q1

REPORT INFORMATION
  Report Type: 
  Country: None (occurrence: None)
  Receive Date: 20100209
  Receipt Date: 20100204
  Transmission Date: 20100710
  Serious: Yes (Other)
  Sender: FDA-Public Use
  Company Number: DE-WYE-G05502610

PATIENT
  Sex: Male

DRUGS (1)
  1. TAZOBAC EF [Suspect]
     Dosage: UNKNOWN
     Route: 042

REACTIONS (3)
  - APPLICATION SITE VESICLES [None]
  - INFUSION SITE EXTRAVASATION [None]
  - NEUTROPENIA [None]
